FAERS Safety Report 20144095 (Version 1)
Quarter: 2021Q4

REPORT INFORMATION
  Report Type: Spontaneous
  Country: FR (occurrence: FR)
  Receive Date: 20211203
  Receipt Date: 20211203
  Transmission Date: 20220304
  Serious: Yes (Hospitalization, Other)
  Sender: FDA-Public Use
  Company Number: FR-AFSSAPS-GR20214748

PATIENT
  Age: 53 Year
  Sex: Male

DRUGS (2)
  1. ELETRIPTAN [Suspect]
     Active Substance: ELETRIPTAN
     Indication: Migraine
     Dosage: 1 DOSAGE FORM
     Route: 048
     Dates: end: 20210924
  2. EMGALITY [Suspect]
     Active Substance: GALCANEZUMAB-GNLM
     Indication: Migraine
     Dosage: 2 DOSAGE FORM
     Route: 058
     Dates: start: 20210917, end: 20210917

REACTIONS (1)
  - Carotid artery dissection [Recovered/Resolved]

NARRATIVE: CASE EVENT DATE: 20210919
